FAERS Safety Report 9528558 (Version 1)
Quarter: 2013Q1

REPORT INFORMATION
  Report Type: Spontaneous
  Country: US (occurrence: None)
  Receive Date: 20130322
  Receipt Date: 20130322
  Transmission Date: 20140127
  Serious: Yes (Other)
  Sender: FDA-Public Use
  Company Number: PHEH2012US013789

PATIENT
  Sex: Female

DRUGS (1)
  1. NEORAL [Suspect]
     Indication: STEM CELL TRANSPLANT
     Dosage: 175 MG, 100 MG IN MORNING AND 75 MG IN EVENING, ORAL
     Route: 048
     Dates: start: 201201

REACTIONS (1)
  - Lymphadenopathy [None]
